FAERS Safety Report 14893897 (Version 8)
Quarter: 2018Q4

REPORT INFORMATION
  Report Type: Report from Study
  Country: US (occurrence: US)
  Receive Date: 20180514
  Receipt Date: 20181228
  Transmission Date: 20190204
  Serious: Yes (Hospitalization)
  Sender: FDA-Public Use
  Company Number: US-ACTELION-A-NJ2016-142262

PATIENT
  Age: 71 Year
  Sex: Female
  Weight: 66.21 kg

DRUGS (28)
  1. OPSUMIT [Suspect]
     Active Substance: MACITENTAN
     Indication: PULMONARY ARTERIAL HYPERTENSION
     Dosage: 10 MG, QD
     Route: 048
     Dates: start: 20140723
  2. WARFARIN [Concomitant]
     Active Substance: WARFARIN
     Dosage: 5 MG, QD
     Dates: start: 20180326
  3. LASIX [Concomitant]
     Active Substance: FUROSEMIDE
  4. METOLAZONE. [Concomitant]
     Active Substance: METOLAZONE
     Dosage: 5 MG, 1 TAB, M, W, F
     Route: 048
     Dates: start: 20180430
  5. DIGOXIN. [Concomitant]
     Active Substance: DIGOXIN
     Dosage: 125 MCG, QD EVERY OTHER DAY
     Dates: start: 20140402
  6. ALPRAZOLAM. [Concomitant]
     Active Substance: ALPRAZOLAM
     Dosage: 0.25 MG, 3 X DAILY, PRN
     Route: 048
     Dates: start: 20140402
  7. TRAMADOL HCL [Concomitant]
     Active Substance: TRAMADOL HYDROCHLORIDE
     Dosage: 50 MG, PRN
     Route: 048
     Dates: start: 20140829
  8. CALCITRIOL. [Concomitant]
     Active Substance: CALCITRIOL
     Dosage: 0.25 MCG, UNK
     Route: 048
     Dates: start: 20180212
  9. CYMBALTA [Concomitant]
     Active Substance: DULOXETINE HYDROCHLORIDE
     Dosage: 30 MG, BID
     Route: 048
     Dates: start: 20140402
  10. CALCIUM + VITAMIN D [Concomitant]
     Active Substance: CALCIUM\VITAMIN D
     Dosage: UNK
     Dates: start: 20150325
  11. REVATIO [Concomitant]
     Active Substance: SILDENAFIL CITRATE
     Dosage: 20 MG, TID
     Dates: start: 20140402
  12. REMODULIN [Concomitant]
     Active Substance: TREPROSTINIL
     Dosage: 62 NG/KG, PER MIN
     Dates: start: 20150624
  13. TRAZODONE [Concomitant]
     Active Substance: TRAZODONE HYDROCHLORIDE
     Dosage: 50 MG, QPM
     Route: 048
     Dates: start: 20140402
  14. ATORVASTATIN CALCIUM. [Concomitant]
     Active Substance: ATORVASTATIN CALCIUM
     Dosage: 10 MG, QD
     Route: 048
     Dates: start: 20150227
  15. SYNTHROID [Concomitant]
     Active Substance: LEVOTHYROXINE SODIUM
     Dosage: 88 MCG, UNK
     Route: 048
     Dates: start: 20170118
  16. ZOFRAN [Concomitant]
     Active Substance: ONDANSETRON HYDROCHLORIDE
     Dosage: 4 MG, Q8HRS.
     Dates: start: 20161204
  17. DYMISTA [Concomitant]
     Active Substance: AZELASTINE HYDROCHLORIDE\FLUTICASONE PROPIONATE
     Dosage: UNK MCG, 2 SPRAYS EACH NOSTRIL QD
     Route: 045
     Dates: start: 20171010
  18. FERROUS SULFATE. [Concomitant]
     Active Substance: FERROUS SULFATE
     Dosage: 325 (65)
     Route: 048
  19. REMODULIN [Concomitant]
     Active Substance: TREPROSTINIL
     Dosage: UNK
     Dates: start: 2010
  20. BUMETANIDE. [Concomitant]
     Active Substance: BUMETANIDE
     Dosage: 2 MG, UNK
     Dates: start: 20180227
  21. DILT-XR [Concomitant]
     Active Substance: DILTIAZEM
     Dosage: 240 MG, UNK
     Route: 048
     Dates: start: 20161123
  22. VITAMIN D [Concomitant]
     Active Substance: CHOLECALCIFEROL
     Dosage: 50000 U, UNK
     Dates: start: 20150325
  23. DILTIAZEM. [Concomitant]
     Active Substance: DILTIAZEM
  24. OCUVITE [Concomitant]
     Active Substance: VITAMINS
     Dosage: UNK, BID
     Dates: start: 20150325
  25. MIDODRINE HCL [Concomitant]
     Active Substance: MIDODRINE HYDROCHLORIDE
     Dosage: 5 MG, TID
     Route: 048
     Dates: start: 20181123
  26. SILDENAFIL. [Concomitant]
     Active Substance: SILDENAFIL
     Dosage: 20 MG, TID
     Dates: start: 2014
  27. OXYBUTYNIN. [Concomitant]
     Active Substance: OXYBUTYNIN CHLORIDE
     Dosage: 15 MG, QD
     Route: 048
     Dates: start: 20170612
  28. OMEPRAZOLE. [Concomitant]
     Active Substance: OMEPRAZOLE
     Dosage: 40 MG, QD
     Route: 048
     Dates: start: 20140402

REACTIONS (23)
  - Pulmonary oedema [Recovered/Resolved]
  - Renal disorder [Unknown]
  - Dyspnoea [Recovered/Resolved]
  - Oedema [Recovered/Resolved]
  - Hypoxia [Recovered/Resolved]
  - Peripheral swelling [Unknown]
  - Weight increased [Recovered/Resolved]
  - Polyuria [Recovered/Resolved]
  - Catheter site erythema [Recovering/Resolving]
  - Hospitalisation [Unknown]
  - Pulmonary arterial pressure decreased [Recovered/Resolved]
  - Dialysis [Unknown]
  - Atrial fibrillation [Unknown]
  - Headache [Unknown]
  - Pleural effusion [Recovered/Resolved]
  - Right ventricular ejection fraction decreased [Recovered/Resolved]
  - Vascular device infection [Recovered/Resolved]
  - Device dislocation [Recovered/Resolved]
  - Catheter site pain [Recovering/Resolving]
  - Pulmonary arterial hypertension [Unknown]
  - Condition aggravated [Recovered/Resolved]
  - Lower respiratory tract infection [Unknown]
  - Streptococcus test positive [Recovered/Resolved]

NARRATIVE: CASE EVENT DATE: 20171106
